FAERS Safety Report 4727534-4 (Version None)
Quarter: 2005Q3

REPORT INFORMATION
  Report Type: 
  Country: None (occurrence: None)
  Receive Date: 20050727
  Receipt Date: 20050727
  Transmission Date: 20060218
  Serious: Yes (Hospitalization)
  Sender: FDA-Public Use
  Company Number: None

PATIENT
  Age: 73 Year
  Sex: Male

DRUGS (2)
  1. WARFARIN 5MG [Suspect]
     Indication: ATRIAL FIBRILLATION
     Dosage: 22.5MG  WEEKLY ORAL
     Route: 048
  2. ASPIRIN [Concomitant]

REACTIONS (7)
  - ABNORMAL FAECES [None]
  - COLITIS [None]
  - DIARRHOEA [None]
  - FAECES DISCOLOURED [None]
  - HAEMATOCRIT DECREASED [None]
  - HAEMOGLOBIN DECREASED [None]
  - INTERNATIONAL NORMALISED RATIO INCREASED [None]
